FAERS Safety Report 5600495-1 (Version None)
Quarter: 2008Q1

REPORT INFORMATION
  Report Type: 
  Country: None (occurrence: None)
  Receive Date: 20080123
  Receipt Date: 20080114
  Transmission Date: 20080703
  Serious: Yes (Hospitalization, Other)
  Sender: FDA-Public Use
  Company Number: US-ELI_LILLY_AND_COMPANY-US200801002677

PATIENT
  Sex: Male

DRUGS (1)
  1. HUMALOG [Suspect]
     Indication: DIABETES MELLITUS
     Dates: start: 19960101

REACTIONS (5)
  - CARPAL TUNNEL DECOMPRESSION [None]
  - CORONARY ARTERY BYPASS [None]
  - HOSPITALISATION [None]
  - STENT PLACEMENT [None]
  - SURGERY [None]
